FAERS Safety Report 24806773 (Version 1)
Quarter: 2025Q1

REPORT INFORMATION
  Report Type: Spontaneous
  Country: US (occurrence: US)
  Receive Date: 20250104
  Receipt Date: 20250104
  Transmission Date: 20250408
  Serious: Yes (Other)
  Sender: AUROBINDO
  Company Number: US-AUROBINDO-AUR-APL-2024-055066

PATIENT
  Age: 49 Year
  Sex: Female

DRUGS (6)
  1. DIMETHYL FUMARATE [Suspect]
     Active Substance: DIMETHYL FUMARATE
     Indication: Herpes zoster oticus
     Route: 065
  2. IBUPROFEN [Concomitant]
     Active Substance: IBUPROFEN
     Indication: Ear pain
     Dosage: 800 MILLIGRAM, 3 TIMES A DAY
     Route: 065
  3. KETOTIFEN [Concomitant]
     Active Substance: KETOTIFEN
     Indication: Ocular hyperaemia
     Route: 065
  4. VALACYCLOVIR [Concomitant]
     Active Substance: VALACYCLOVIR HYDROCHLORIDE
     Indication: Herpes zoster oticus
     Route: 048
  5. ACYCLOVIR [Concomitant]
     Active Substance: ACYCLOVIR
     Indication: Antiviral treatment
     Dosage: 550 MILLIGRAM, 3 TIMES A DAY
     Route: 065
  6. PREDNISONE [Concomitant]
     Active Substance: PREDNISONE
     Indication: Ophthalmic herpes zoster
     Route: 048

REACTIONS (1)
  - Disseminated herpes simplex [Recovering/Resolving]
